FAERS Safety Report 23284730 (Version 3)
Quarter: 2024Q1

REPORT INFORMATION
  Report Type: Spontaneous
  Country: US (occurrence: US)
  Receive Date: 20231211
  Receipt Date: 20240311
  Transmission Date: 20240410
  Serious: Yes (Other)
  Sender: FDA-Public Use
  Company Number: US-BRISTOL-MYERS SQUIBB COMPANY-2023-176627

PATIENT
  Sex: Female

DRUGS (3)
  1. OPDIVO [Suspect]
     Active Substance: NIVOLUMAB
     Indication: Rectal neoplasm
     Dosage: DOSE : UNKNOWN;     FREQ : UNKNOWN
     Route: 042
     Dates: start: 201511, end: 201611
  2. OPDIVO [Suspect]
     Active Substance: NIVOLUMAB
     Indication: Colon cancer
  3. SUMATRIPTAN SUCCINATE [Concomitant]
     Active Substance: SUMATRIPTAN SUCCINATE
     Indication: Product used for unknown indication

REACTIONS (25)
  - Illness [Unknown]
  - Arthralgia [Unknown]
  - Localised oedema [Unknown]
  - Angina pectoris [Unknown]
  - Arrhythmia [Unknown]
  - Palpitations [Unknown]
  - Headache [Not Recovered/Not Resolved]
  - Vomiting [Not Recovered/Not Resolved]
  - Bone swelling [Unknown]
  - Coccydynia [Unknown]
  - Fatigue [Unknown]
  - Dyspnoea exertional [Unknown]
  - Back pain [Unknown]
  - Tenderness [Unknown]
  - Stress [Unknown]
  - Injury [Unknown]
  - Peripheral swelling [Not Recovered/Not Resolved]
  - Fall [Unknown]
  - Rectal cancer recurrent [Unknown]
  - Skin disorder [Unknown]
  - Chest pain [Unknown]
  - Nausea [Unknown]
  - Migraine [Unknown]
  - Skin cancer [Unknown]
  - Skin abrasion [Unknown]
